FAERS Safety Report 21915691 (Version 1)
Quarter: 2023Q1

REPORT INFORMATION
  Report Type: Spontaneous
  Country: US (occurrence: None)
  Receive Date: 20230125
  Receipt Date: 20230125
  Transmission Date: 20230417
  Serious: Yes (Death)
  Sender: FDA-Public Use
  Company Number: None

PATIENT
  Age: 81 Year
  Sex: Male
  Weight: 70.49 kg

DRUGS (16)
  1. ABIRATERONE ACETATE [Suspect]
     Active Substance: ABIRATERONE ACETATE
     Indication: Prostate cancer
  2. Aspirin EC Low Dose [Concomitant]
  3. Beet Root [Concomitant]
  4. CALCIUM CITRATE [Concomitant]
     Active Substance: CALCIUM CITRATE
  5. VITAMIN D [Concomitant]
     Active Substance: VITAMIN D NOS
  6. DOXAZOSIN MESYLATE [Concomitant]
  7. GABAPENTIN [Concomitant]
     Active Substance: GABAPENTIN
  8. metFORMIN HCI [Concomitant]
  9. METOPROLOL TARTRATE [Concomitant]
  10. MORPHINE [Concomitant]
     Active Substance: MORPHINE
  11. Multivitamin Men [Concomitant]
  12. oxyCODONE-Acetaminophen [Concomitant]
  13. PRAVASTATIN SODIUM [Concomitant]
  14. PREDNISONE [Concomitant]
     Active Substance: PREDNISONE
  15. Quinapril HCI [Concomitant]
  16. Sertraline HCI [Concomitant]

REACTIONS (1)
  - Death [None]

NARRATIVE: CASE EVENT DATE: 20230125
